FAERS Safety Report 6656602-5 (Version None)
Quarter: 2010Q1

REPORT INFORMATION
  Report Type: 
  Country: None (occurrence: None)
  Receive Date: 20100329
  Receipt Date: 20100204
  Transmission Date: 20100710
  Serious: No
  Sender: FDA-Public Use
  Company Number: US-BAUSCH-2010BL000674

PATIENT
  Age: 62 Year
  Sex: Male

DRUGS (4)
  1. FLUNISOLIDE [Suspect]
     Indication: SINUS CONGESTION
     Route: 045
     Dates: start: 20100121, end: 20100128
  2. TOPROL-XL [Concomitant]
  3. DIGOXIN [Concomitant]
  4. BUMEX [Concomitant]
     Indication: POLYURIA

REACTIONS (5)
  - AGEUSIA [None]
  - ANOSMIA [None]
  - DECREASED APPETITE [None]
  - DYSGEUSIA [None]
  - TOOTH DEPOSIT [None]
